FAERS Safety Report 12733974 (Version 1)
Quarter: 2016Q3

REPORT INFORMATION
  Report Type: Spontaneous
  Country: US (occurrence: US)
  Receive Date: 20160912
  Receipt Date: 20160912
  Transmission Date: 20161109
  Serious: Yes (Other)
  Sender: FDA-Public Use
  Company Number: US-BEH-200610478

PATIENT
  Age: 25 Year
  Sex: Male

DRUGS (1)
  1. MONONINE [Suspect]
     Active Substance: COAGULATION FACTOR IX HUMAN
     Indication: HAEMOPHILIA
     Route: 042
     Dates: start: 20060814, end: 20060814

REACTIONS (9)
  - Flushing [Recovered/Resolved]
  - Swollen tongue [Recovered/Resolved]
  - Inflammation [Recovered/Resolved]
  - Metamorphopsia [Recovered/Resolved]
  - Dizziness [Recovered/Resolved]
  - Hypoaesthesia oral [Recovered/Resolved]
  - Blindness transient [Recovered/Resolved]
  - Nausea [Recovered/Resolved]
  - Feeling abnormal [Recovered/Resolved]

NARRATIVE: CASE EVENT DATE: 20060814
